FAERS Safety Report 11751801 (Version 1)
Quarter: 2015Q4

REPORT INFORMATION
  Report Type: Spontaneous
  Country: GB (occurrence: GB)
  Receive Date: 20151118
  Receipt Date: 20151118
  Transmission Date: 20160304
  Serious: Yes (Other)
  Sender: FDA-Public Use
  Company Number: GB-PFIZER INC-2015387426

PATIENT
  Age: 66 Year
  Sex: Female

DRUGS (4)
  1. HERMES CALCIUM D3 [Concomitant]
     Dosage: 1 DF, 1X/DAY
     Dates: start: 201507
  2. ANASTROZOLE. [Concomitant]
     Active Substance: ANASTROZOLE
     Dosage: 1 MG, 1X/DAY
     Dates: start: 201401
  3. ATORVASTATIN CALCIUM. [Suspect]
     Active Substance: ATORVASTATIN CALCIUM
     Indication: HYPERCHOLESTEROLAEMIA
     Dosage: UNK UNK, 1X/DAY
  4. ALENDRONIC ACID [Concomitant]
     Active Substance: ALENDRONIC ACID
     Dosage: 70 MG, WEEKLY
     Dates: start: 201401

REACTIONS (3)
  - Cutaneous vasculitis [Not Recovered/Not Resolved]
  - Contusion [Not Recovered/Not Resolved]
  - Tongue discolouration [Not Recovered/Not Resolved]
